FAERS Safety Report 12868151 (Version 3)
Quarter: 2018Q1

REPORT INFORMATION
  Report Type: Spontaneous
  Country: US (occurrence: US)
  Receive Date: 20161020
  Receipt Date: 20180123
  Transmission Date: 20180508
  Serious: No
  Sender: FDA-Public Use
  Company Number: US-AMGEN-USASP2016128079

PATIENT
  Age: 61 Year
  Sex: Female

DRUGS (1)
  1. REPATHA [Suspect]
     Active Substance: EVOLOCUMAB
     Indication: BLOOD CHOLESTEROL INCREASED
     Dosage: 140 MG, Q2WK
     Route: 065
     Dates: end: 20160801

REACTIONS (9)
  - Diarrhoea [Unknown]
  - Secretion discharge [Unknown]
  - Cough [Unknown]
  - Respiratory tract congestion [Unknown]
  - Social avoidant behaviour [Recovering/Resolving]
  - Hypersensitivity [Unknown]
  - Malaise [Unknown]
  - Irritability [Unknown]
  - Bradyphrenia [Recovering/Resolving]
